FAERS Safety Report 18866350 (Version 1)
Quarter: 2021Q1

REPORT INFORMATION
  Report Type: Spontaneous
  Country: US (occurrence: US)
  Receive Date: 20210208
  Receipt Date: 20210208
  Transmission Date: 20210420
  Serious: Yes (Other)
  Sender: FDA-Public Use
  Company Number: None

PATIENT
  Age: 35 Year
  Sex: Female
  Weight: 112 kg

DRUGS (2)
  1. BUPROPION (BUPROPION HCL 100MG 12HR TAB, SA) [Suspect]
     Active Substance: BUPROPION HYDROCHLORIDE
     Indication: DEPRESSION
     Route: 048
     Dates: start: 20190904, end: 20200620
  2. BUPROPION (BUPROPION HCL 100MG 12HR TAB, SA) [Suspect]
     Active Substance: BUPROPION HYDROCHLORIDE
     Indication: LETHARGY

REACTIONS (1)
  - Seizure [None]

NARRATIVE: CASE EVENT DATE: 20200612
